FAERS Safety Report 5612415-4 (Version None)
Quarter: 2008Q1

REPORT INFORMATION
  Report Type: 
  Country: None (occurrence: None)
  Receive Date: 20080204
  Receipt Date: 20080123
  Transmission Date: 20080703
  Serious: Yes (Hospitalization)
  Sender: FDA-Public Use
  Company Number: US-MERCK-0705USA04175

PATIENT
  Age: 54 Year
  Sex: Female

DRUGS (2)
  1. FOSAMAX [Suspect]
     Indication: OSTEOPOROSIS
     Route: 048
     Dates: start: 20040408, end: 20060501
  2. PREMARIN [Concomitant]
     Route: 065
     Dates: start: 19970101

REACTIONS (6)
  - ANGIOPATHY [None]
  - BLOOD CHOLESTEROL INCREASED [None]
  - GASTRIC INFECTION [None]
  - INFECTION [None]
  - RHEUMATOID ARTHRITIS [None]
  - TOOTH LOSS [None]
